FAERS Safety Report 10176039 (Version 1)
Quarter: 2014Q2

REPORT INFORMATION
  Report Type: Spontaneous
  Country: BR (occurrence: BR)
  Receive Date: 20140516
  Receipt Date: 20140516
  Transmission Date: 20141212
  Serious: Yes (Hospitalization, Other)
  Sender: FDA-Public Use
  Company Number: PHHY2014BR058558

PATIENT
  Age: 0 Day
  Sex: Male

DRUGS (3)
  1. FORASEQ [Suspect]
     Dosage: MATERNAL DOSE (12/400 MCG, 1 OR 2 TIMES A DAY)
     Route: 064
  2. ENOXAPARIN SODIUM [Concomitant]
     Dosage: UNK, MATERNAL DOSE
  3. MULTI-VIT [Concomitant]
     Dosage: UNK, MATERNAL DOSE

REACTIONS (3)
  - Low birth weight baby [Recovered/Resolved]
  - Premature baby [Unknown]
  - Foetal exposure during pregnancy [Unknown]
